FAERS Safety Report 7265869-4 (Version None)
Quarter: 2011Q1

REPORT INFORMATION
  Report Type: 
  Country: None (occurrence: None)
  Receive Date: 20110131
  Receipt Date: 20110121
  Transmission Date: 20110831
  Serious: Yes (Other)
  Sender: FDA-Public Use
  Company Number: B0655061A

PATIENT
  Age: 45 Year
  Sex: Male
  Weight: 80.73 kg

DRUGS (8)
  1. DARUNAVIR ETHANOLATE [Concomitant]
     Route: 048
     Dates: start: 20080221
  2. TRUVADA [Concomitant]
     Route: 048
     Dates: start: 20080221
  3. RITONAVIR [Concomitant]
     Route: 048
     Dates: start: 20080221
  4. RALTEGRAVIR [Concomitant]
     Route: 048
     Dates: start: 20080221
  5. ASA [Concomitant]
     Route: 048
     Dates: start: 20060421
  6. MARAVIROC [Suspect]
     Route: 048
     Dates: start: 20051222, end: 20070618
  7. MULTIVITAMIN [Concomitant]
     Route: 048
     Dates: start: 20071015
  8. ETRAVIRINE [Concomitant]
     Route: 048
     Dates: start: 20080221

REACTIONS (1)
  - HODGKIN'S DISEASE [None]
